FAERS Safety Report 17174060 (Version 1)
Quarter: 2019Q4

REPORT INFORMATION
  Report Type: Report from Study
  Country: US (occurrence: US)
  Receive Date: 20191218
  Receipt Date: 20191218
  Transmission Date: 20200122
  Serious: Yes (Hospitalization)
  Sender: FDA-Public Use
  Company Number: US-ROCHE-2497520

PATIENT
  Age: 81 Year
  Sex: Male
  Weight: 104.8 kg

DRUGS (5)
  1. ELIQUIS [Concomitant]
     Active Substance: APIXABAN
  2. RASBURICASE [Concomitant]
     Active Substance: RASBURICASE
     Route: 042
  3. IBRUTINIB [Suspect]
     Active Substance: IBRUTINIB
     Indication: CHRONIC LYMPHOCYTIC LEUKAEMIA
     Dosage: ON 21/NOV/2019, HE RECEIVED RECENT DOSE OF 21/NOV/2019.
     Route: 048
     Dates: start: 20191114
  4. ALLOPURINOL. [Concomitant]
     Active Substance: ALLOPURINOL
  5. OBINUTUZUMAB. [Suspect]
     Active Substance: OBINUTUZUMAB
     Indication: CHRONIC LYMPHOCYTIC LEUKAEMIA
     Dosage: ON 15/NOV/2019, HE RECEIVED RECENT DOSE OF OBINUTUZUMAB.
     Route: 042
     Dates: start: 20191114

REACTIONS (2)
  - Muscular weakness [Unknown]
  - Hypotension [Not Recovered/Not Resolved]

NARRATIVE: CASE EVENT DATE: 20191121
